FAERS Safety Report 4449503-4 (Version None)
Quarter: 2004Q3

REPORT INFORMATION
  Report Type: 
  Country: None (occurrence: None)
  Receive Date: 20040913
  Receipt Date: 20040913
  Transmission Date: 20050211
  Serious: Yes (Death)
  Sender: FDA-Public Use
  Company Number: None

PATIENT
  Age: 51 Year
  Sex: Female
  Weight: 47.6277 kg

DRUGS (2)
  1. ZOLOFT [Suspect]
     Indication: DEPRESSION
     Dosage: DAILY   ORAL
     Route: 048
     Dates: start: 20000515, end: 20030815
  2. PAXIL [Suspect]
     Indication: DEPRESSION
     Dosage: DAILY   ORAL
     Route: 048
     Dates: start: 20030515, end: 20040621

REACTIONS (1)
  - COMPLETED SUICIDE [None]
